FAERS Safety Report 5287027-5 (Version None)
Quarter: 2007Q2

REPORT INFORMATION
  Report Type: 
  Country: None (occurrence: None)
  Receive Date: 20070404
  Receipt Date: 20070326
  Transmission Date: 20071010
  Serious: Yes (Hospitalization, Other)
  Sender: FDA-Public Use
  Company Number: US-PFIZER INC-2007016247

PATIENT
  Sex: Female

DRUGS (3)
  1. GLIBENCLAMIDE TABLET [Suspect]
  2. RHINOCORT [Suspect]
     Indication: POSTNASAL DRIP
  3. ACETYLSALICYLIC ACID SRT [Concomitant]

REACTIONS (5)
  - BLOOD GLUCOSE DECREASED [None]
  - BLOOD GLUCOSE INCREASED [None]
  - EPISTAXIS [None]
  - FEELING HOT [None]
  - LOSS OF CONSCIOUSNESS [None]
